FAERS Safety Report 17099349 (Version 1)
Quarter: 2019Q4

REPORT INFORMATION
  Report Type: Spontaneous
  Country: US (occurrence: US)
  Receive Date: 20191201
  Receipt Date: 20191201
  Transmission Date: 20200122
  Serious: Yes (Hospitalization)
  Sender: FDA-Public Use
  Company Number: None

PATIENT
  Age: 54 Year
  Sex: Female

DRUGS (12)
  1. DORZOL/TIMOL [Concomitant]
  2. ELIQUIS [Concomitant]
     Active Substance: APIXABAN
  3. ANASTROZOLE. [Concomitant]
     Active Substance: ANASTROZOLE
  4. DUREZOL [Concomitant]
     Active Substance: DIFLUPREDNATE
  5. FLUTICASONE. [Concomitant]
     Active Substance: FLUTICASONE
  6. BALOFEN [Concomitant]
  7. PAZEO [Concomitant]
     Active Substance: OLOPATADINE HYDROCHLORIDE
  8. PREDNISOLONE. [Concomitant]
     Active Substance: PREDNISOLONE
  9. DALFAMPRIDINE. [Suspect]
     Active Substance: DALFAMPRIDINE
     Indication: MULTIPLE SCLEROSIS
     Route: 048
  10. ATORVASTATIN [Concomitant]
     Active Substance: ATORVASTATIN
  11. IBUPROFEN. [Concomitant]
     Active Substance: IBUPROFEN
  12. LEVOTHYROXIN [Concomitant]
     Active Substance: LEVOTHYROXINE

REACTIONS (1)
  - Fall [None]

NARRATIVE: CASE EVENT DATE: 20191101
